FAERS Safety Report 9679336 (Version 1)
Quarter: 2013Q4

REPORT INFORMATION
  Report Type: Spontaneous
  Country: US (occurrence: US)
  Receive Date: 20131109
  Receipt Date: 20131109
  Transmission Date: 20140711
  Serious: No
  Sender: FDA-Public Use
  Company Number: US-SANOFI-AVENTIS-2013SA003309

PATIENT
  Age: 23 Year
  Sex: Female

DRUGS (1)
  1. ALLEGRA-D, 24 HR [Suspect]
     Indication: NASOPHARYNGITIS
     Dates: start: 201301

REACTIONS (2)
  - Insomnia [Recovered/Resolved]
  - Drug ineffective [Unknown]
